FAERS Safety Report 4322640-0 (Version None)
Quarter: 2004Q1

REPORT INFORMATION
  Report Type: 
  Country: None (occurrence: None)
  Receive Date: 20040324
  Receipt Date: 20031201
  Transmission Date: 20041129
  Serious: No
  Sender: FDA-Public Use
  Company Number: PR-BRISTOL-MYERS SQUIBB COMPANY-12447694

PATIENT
  Age: 57 Year
  Sex: Male
  Weight: 61 kg

DRUGS (7)
  1. REYATAZ [Suspect]
     Indication: HIV INFECTION
     Route: 048
     Dates: start: 20031126, end: 20031130
  2. ZERIT [Concomitant]
  3. NORVIR [Concomitant]
  4. VIREAD [Concomitant]
  5. PROTONIX [Concomitant]
  6. PROPRANOLOL [Concomitant]
  7. HUMALOG [Concomitant]

REACTIONS (2)
  - DIARRHOEA [None]
  - VOMITING [None]
